FAERS Safety Report 7252493-2 (Version None)
Quarter: 2011Q1

REPORT INFORMATION
  Report Type: 
  Country: None (occurrence: None)
  Receive Date: 20110129
  Receipt Date: 20110125
  Transmission Date: 20110831
  Serious: Yes (Other)
  Sender: FDA-Public Use
  Company Number: US-AMGEN-USASP2010012881

PATIENT
  Age: 83 Year
  Sex: Female
  Weight: 112.93 kg

DRUGS (5)
  1. NPLATE [Suspect]
     Indication: MYELODYSPLASTIC SYNDROME
  2. IRON [Concomitant]
     Route: 042
  3. FOLATE [Concomitant]
     Route: 048
  4. VITAMIN B-12 [Concomitant]
     Route: 058
  5. NPLATE [Suspect]
     Indication: IDIOPATHIC THROMBOCYTOPENIC PURPURA
     Dosage: 4 A?G/KG, QWK
     Route: 058
     Dates: start: 20100126, end: 20100806

REACTIONS (4)
  - DRUG INEFFECTIVE [None]
  - DYSPNOEA EXERTIONAL [None]
  - FATIGUE [None]
  - THERAPEUTIC RESPONSE DECREASED [None]
